FAERS Safety Report 13744689 (Version 1)
Quarter: 2017Q3

REPORT INFORMATION
  Report Type: Spontaneous
  Country: US (occurrence: US)
  Receive Date: 20170711
  Receipt Date: 20170711
  Transmission Date: 20171127
  Serious: No
  Sender: FDA-Public Use
  Company Number: None

PATIENT
  Age: 32 Year
  Sex: Female
  Weight: 99 kg

DRUGS (11)
  1. DEXILANT [Suspect]
     Active Substance: DEXLANSOPRAZOLE
     Indication: GASTROOESOPHAGEAL REFLUX DISEASE
     Dosage: ?          OTHER STRENGTH:MG;QUANTITY:30 CAPSULE(S);?
     Route: 048
     Dates: start: 20170621, end: 20170706
  2. HYDROCODONE [Concomitant]
     Active Substance: HYDROCODONE
  3. HYDROCHLOROTHIAZIDE. [Concomitant]
     Active Substance: HYDROCHLOROTHIAZIDE
  4. VITAMIN C [Concomitant]
     Active Substance: ASCORBIC ACID
  5. METFORMIN [Concomitant]
     Active Substance: METFORMIN HYDROCHLORIDE
  6. VALIUM [Concomitant]
     Active Substance: DIAZEPAM
  7. PROPRANOLOL [Concomitant]
     Active Substance: PROPRANOLOL HYDROCHLORIDE
  8. TOPAMAX [Concomitant]
     Active Substance: TOPIRAMATE
  9. LISINOPRIL. [Concomitant]
     Active Substance: LISINOPRIL
  10. ZYRTEC [Concomitant]
     Active Substance: CETIRIZINE HYDROCHLORIDE
  11. FISH FLAX + BORAGE OIL [Concomitant]

REACTIONS (11)
  - Feeling abnormal [None]
  - Abdominal pain upper [None]
  - Eyelid oedema [None]
  - Nausea [None]
  - Headache [None]
  - Chest pain [None]
  - Oropharyngeal pain [None]
  - Cough [None]
  - Peripheral swelling [None]
  - Pain [None]
  - Swelling [None]

NARRATIVE: CASE EVENT DATE: 20170701
